FAERS Safety Report 18172670 (Version 4)
Quarter: 2020Q4

REPORT INFORMATION
  Report Type: Spontaneous
  Country: US (occurrence: US)
  Receive Date: 20200820
  Receipt Date: 20201216
  Transmission Date: 20210113
  Serious: No
  Sender: FDA-Public Use
  Company Number: US-BRISTOL-MYERS SQUIBB COMPANY-BMS-2020-067000

PATIENT
  Sex: Female

DRUGS (1)
  1. SPRYCEL [Suspect]
     Active Substance: DASATINIB
     Indication: CHRONIC MYELOID LEUKAEMIA
     Dosage: 100 MILLIGRAM, QD
     Route: 048
     Dates: start: 20200728

REACTIONS (7)
  - Fatigue [Unknown]
  - Nausea [Unknown]
  - Diarrhoea [Unknown]
  - Hepatic enzyme increased [Unknown]
  - Decreased appetite [Unknown]
  - Alopecia [Unknown]
  - Vomiting [Unknown]
